FAERS Safety Report 13033748 (Version 1)
Quarter: 2016Q4

REPORT INFORMATION
  Report Type: Spontaneous
  Country: NO (occurrence: NO)
  Receive Date: 20161216
  Receipt Date: 20161216
  Transmission Date: 20170207
  Serious: Yes (Hospitalization)
  Sender: FDA-Public Use
  Company Number: NO-ACCORD-046647

PATIENT
  Age: 10 Year
  Sex: Male

DRUGS (1)
  1. LEVETIRACETAM. [Suspect]
     Active Substance: LEVETIRACETAM
     Indication: EPILEPSY
     Dosage: 500 MG + 375 MG
     Dates: start: 20161107, end: 20161110

REACTIONS (5)
  - Hallucination [Recovered/Resolved]
  - Product substitution issue [Recovered/Resolved]
  - Petit mal epilepsy [Recovered/Resolved]
  - Incoherent [Recovered/Resolved]
  - Status epilepticus [Recovered/Resolved]

NARRATIVE: CASE EVENT DATE: 20161110
